FAERS Safety Report 9173751 (Version 2)
Quarter: 2013Q3

REPORT INFORMATION
  Report Type: Spontaneous
  Country: CA (occurrence: None)
  Receive Date: 20130315
  Receipt Date: 20130917
  Transmission Date: 20140515
  Serious: Yes (Hospitalization)
  Sender: FDA-Public Use
  Company Number: ACO_34766_2013

PATIENT
  Age: 47 Year
  Sex: Female

DRUGS (1)
  1. FAMPYRA [Suspect]
     Indication: GAIT DISTURBANCE
     Route: 048
     Dates: start: 20130205, end: 20130207

REACTIONS (2)
  - Pancreatitis [None]
  - Cholelithiasis [None]
